FAERS Safety Report 18967038 (Version 1)
Quarter: 2021Q1

REPORT INFORMATION
  Report Type: Spontaneous
  Country: US (occurrence: US)
  Receive Date: 20210304
  Receipt Date: 20210304
  Transmission Date: 20210420
  Serious: No
  Sender: FDA-Public Use
  Company Number: US-AUROBINDO-AUR-APL-2021-002400

PATIENT
  Age: 65 Year
  Sex: Male
  Weight: 104.3 kg

DRUGS (2)
  1. LEVETIRACETAM TABLETS 500 MG [Suspect]
     Active Substance: LEVETIRACETAM
     Indication: CEREBRAL HAEMORRHAGE
     Dosage: 2 DOSAGE FORM, 1 IN THE MORNING AND 1 AT NIGHT
     Route: 048
     Dates: start: 20210110
  2. LEVETIRACETAM TABLETS 500 MG [Suspect]
     Active Substance: LEVETIRACETAM
     Indication: PARTIAL SEIZURES
     Dosage: 500 MILLIGRAM
     Route: 048
     Dates: end: 20210205

REACTIONS (4)
  - Feeling abnormal [Not Recovered/Not Resolved]
  - Tinnitus [Not Recovered/Not Resolved]
  - Headache [Not Recovered/Not Resolved]
  - Visual impairment [Not Recovered/Not Resolved]

NARRATIVE: CASE EVENT DATE: 20210113
